FAERS Safety Report 16290028 (Version 1)
Quarter: 2019Q2

REPORT INFORMATION
  Report Type: Spontaneous
  Country: US (occurrence: US)
  Receive Date: 20190508
  Receipt Date: 20190508
  Transmission Date: 20190711
  Serious: Yes (Disabling, Other)
  Sender: FDA-Public Use
  Company Number: None

PATIENT
  Age: 40 Year
  Sex: Female
  Weight: 74.25 kg

DRUGS (2)
  1. IBUPROPHEN [Concomitant]
     Active Substance: IBUPROFEN
  2. DEPO-PROVERA [Suspect]
     Active Substance: MEDROXYPROGESTERONE ACETATE
     Indication: DYSMENORRHOEA

REACTIONS (11)
  - Nausea [None]
  - Suicidal ideation [None]
  - Violence-related symptom [None]
  - Hypoaesthesia [None]
  - Mood swings [None]
  - Thinking abnormal [None]
  - Aggression [None]
  - Depression [None]
  - Fatigue [None]
  - Vertigo [None]
  - Hyperhidrosis [None]
